FAERS Safety Report 5816361-2 (Version None)
Quarter: 2008Q3

REPORT INFORMATION
  Report Type: 
  Country: None (occurrence: None)
  Receive Date: 20080721
  Receipt Date: 20080304
  Transmission Date: 20090109
  Serious: No
  Sender: FDA-Public Use
  Company Number: US-BAUSCH-2008BL000959

PATIENT
  Age: 68 Year
  Sex: Female

DRUGS (7)
  1. OPCON-A [Suspect]
     Indication: EYE PRURITUS
     Route: 047
     Dates: start: 20080201, end: 20080201
  2. OPCON-A [Suspect]
     Indication: EYE ALLERGY
     Route: 047
     Dates: start: 20080201, end: 20080201
  3. OPCON-A [Suspect]
     Route: 047
     Dates: start: 20080301, end: 20080301
  4. OPCON-A [Suspect]
     Route: 047
     Dates: start: 20080301, end: 20080301
  5. MULTI-VITAMINS [Concomitant]
     Indication: VITAMIN SUPPLEMENTATION
  6. CALCIUM [Concomitant]
     Indication: VITAMIN SUPPLEMENTATION
  7. VITAMIN D [Concomitant]
     Indication: VITAMIN SUPPLEMENTATION

REACTIONS (1)
  - EYE IRRITATION [None]
